FAERS Safety Report 23946782 (Version 1)
Quarter: 2024Q2

REPORT INFORMATION
  Report Type: Spontaneous
  Country: US (occurrence: US)
  Receive Date: 20240606
  Receipt Date: 20240606
  Transmission Date: 20240716
  Serious: No
  Sender: FDA-Public Use
  Company Number: US-BIOGEN-2020BI00824657

PATIENT
  Sex: Female

DRUGS (1)
  1. TYSABRI [Suspect]
     Active Substance: NATALIZUMAB
     Indication: Multiple sclerosis
     Route: 050
     Dates: start: 20180220

REACTIONS (6)
  - Injury associated with device [Unknown]
  - Malaise [Unknown]
  - Multiple sclerosis [Unknown]
  - Paraesthesia [Unknown]
  - Stress [Unknown]
  - Nasopharyngitis [Unknown]
